FAERS Safety Report 10416809 (Version 2)
Quarter: 2014Q3

REPORT INFORMATION
  Report Type: Spontaneous
  Country: US (occurrence: US)
  Receive Date: 20140828
  Receipt Date: 20140828
  Transmission Date: 20150326
  Serious: Yes (Hospitalization, Other)
  Sender: FDA-Public Use
  Company Number: US-009507513-2008-177919-NL

PATIENT
  Sex: Female
  Weight: 93.42 kg

DRUGS (2)
  1. PROVENTIL [Concomitant]
     Active Substance: ALBUTEROL
     Indication: ASTHMA
     Dosage: DOSE TEXT: 0.083%U/D EVERY 6 HOURS, FREQUENCY: PRN
     Route: 055
  2. NUVARING [Suspect]
     Active Substance: ETHINYL ESTRADIOL\ETONOGESTREL
     Indication: CONTRACEPTION
     Dosage: UNK DF, UNK
     Route: 067
     Dates: start: 200504, end: 20051202

REACTIONS (7)
  - Pulmonary embolism [Unknown]
  - Antiphospholipid antibodies positive [Unknown]
  - Pneumonia [Unknown]
  - Gastrooesophageal reflux disease [Unknown]
  - Hyponatraemia [Unknown]
  - Bronchitis [Unknown]
  - Hypokalaemia [Unknown]

NARRATIVE: CASE EVENT DATE: 20051110
